FAERS Safety Report 7422842-0 (Version None)
Quarter: 2011Q2

REPORT INFORMATION
  Report Type: 
  Country: None (occurrence: None)
  Receive Date: 20110419
  Receipt Date: 20110330
  Transmission Date: 20111010
  Serious: Yes (Other)
  Sender: FDA-Public Use
  Company Number: US-BAYER-200934305NA

PATIENT
  Age: 66 Year
  Sex: Female

DRUGS (32)
  1. TRASYLOL [Suspect]
     Dosage: 200 ML (LOADING)
     Route: 042
     Dates: start: 20060808, end: 20060808
  2. TRASYLOL [Suspect]
     Dosage: 25 ML/HR, (INFUSION)
     Route: 042
     Dates: start: 20060808, end: 20060808
  3. MUCOMYST [Concomitant]
     Indication: PROPHYLAXIS
     Dosage: RENAL PROPHYLAXIS
     Dates: start: 20060804
  4. EPINEPHRINE [Concomitant]
     Dosage: DRIP INFUSION
     Dates: start: 20060808
  5. HUMALOG [Concomitant]
     Dosage: SLIDING SCALE, LONG TERM MEDICATION
  6. PLAVIX [Concomitant]
  7. PROTAMINE SULFATE [Concomitant]
     Dosage: 550 MG, UNK
     Dates: start: 20060808
  8. HEPARIN [Concomitant]
     Dosage: 45000 U, UNK
     Dates: start: 20060808
  9. ETOMIDATE [Concomitant]
     Dosage: 26 MG, UNK
     Dates: start: 20060808
  10. MIDAZOLAM [Concomitant]
     Dosage: 8 MG, UNK
     Dates: start: 20060808
  11. SUCCINYLCHOLINE CHLORIDE [Concomitant]
     Dosage: 100 MG, UNK
     Dates: start: 20060808
  12. SODIUM BICARBONATE [Concomitant]
     Indication: PROPHYLAXIS
     Dosage: RENAL PROPHYLAXIS
     Route: 042
     Dates: start: 20060804
  13. MAGNESIUM SULFATE [Concomitant]
     Dosage: 2 G, UNK
     Dates: start: 20060808
  14. LEVOPHED [Concomitant]
     Dosage: DRIP INFUSION
     Dates: start: 20060808
  15. LIDOCAINE [Concomitant]
     Dosage: 100 MG, UNK
     Dates: start: 20060808
  16. PANCURONIUM BROMIDE [Concomitant]
     Dosage: 16 MG, UNK
     Dates: start: 20060808
  17. NITROGLYCERIN [Concomitant]
     Dosage: 5 MCG/MIN
     Dates: start: 20060808
  18. LANTUS [Concomitant]
     Dosage: 25 U, HS LONG TERM MEDICATION
     Route: 058
  19. SYNTHROID [Concomitant]
     Dosage: 25 MCG, DAILY, LONG TERM MEDICAITON
  20. FENTANYL [Concomitant]
     Dosage: 20 ML, UNK
     Dates: start: 20060808
  21. INSULIN [Concomitant]
     Dosage: VARIABLE DRIP
     Dates: start: 20060808
  22. LIPITOR [Concomitant]
     Dosage: 40 MG, DAILY, LONG TERM MEDICATION
  23. PROTONIX [Concomitant]
     Dosage: 40 MG, QD LONG TERM MEDICATON
  24. ALTACE [Concomitant]
     Dosage: 5 MG, QD LONG TERM MEDICATION
  25. LASIX [Concomitant]
  26. ISOFURANE [Concomitant]
     Dosage: UNK
     Dates: start: 20060808
  27. PRIMACOR [Concomitant]
     Dosage: 2 MG, UNK
     Route: 042
     Dates: start: 20060808
  28. VENTOLIN [Concomitant]
     Dosage: 6 PUFFS
     Route: 007
     Dates: start: 20060808
  29. TRASYLOL [Suspect]
     Indication: CORONARY ARTERY BYPASS
     Dosage: 1 ML, ONCE (INITIAL)
     Route: 042
     Dates: start: 20060808, end: 20060808
  30. VISIPAQUE [IODINE,IODIXANOL] [Concomitant]
     Dosage: UNK
     Dates: start: 20060804
  31. ANCEF [Concomitant]
     Dosage: 1 G, UNK
     Dates: start: 20060808
  32. RED BLOOD CELLS [Concomitant]
     Dosage: 2 U, UNK
     Dates: start: 20060808

REACTIONS (12)
  - RENAL INJURY [None]
  - ANXIETY [None]
  - ANHEDONIA [None]
  - DEPRESSION [None]
  - UNEVALUABLE EVENT [None]
  - MULTI-ORGAN FAILURE [None]
  - NERVOUSNESS [None]
  - RENAL FAILURE [None]
  - INJURY [None]
  - EMOTIONAL DISTRESS [None]
  - PAIN [None]
  - FEAR [None]
